FAERS Safety Report 7984182-0 (Version None)
Quarter: 2011Q4

REPORT INFORMATION
  Report Type: 
  Country: None (occurrence: None)
  Receive Date: 20111214
  Receipt Date: 20111206
  Transmission Date: 20120403
  Serious: Yes (Disabling, Other)
  Sender: FDA-Public Use
  Company Number: 2011MA017254

PATIENT
  Age: 57 Year
  Sex: Male

DRUGS (3)
  1. GABAPENTIN [Suspect]
     Indication: NEURALGIA
     Dosage: 300 MG;QD;PO
     Route: 048
  2. LYRICA [Concomitant]
  3. ULTRAM [Concomitant]

REACTIONS (8)
  - WHITE BLOOD CELL COUNT DECREASED [None]
  - TREMOR [None]
  - MUSCLE SPASMS [None]
  - OEDEMA PERIPHERAL [None]
  - SPINAL COLUMN STENOSIS [None]
  - PYREXIA [None]
  - DIZZINESS [None]
  - GAIT DISTURBANCE [None]
